FAERS Safety Report 6752715-8 (Version None)
Quarter: 2010Q2

REPORT INFORMATION
  Report Type: 
  Country: None (occurrence: None)
  Receive Date: 20100602
  Receipt Date: 20100525
  Transmission Date: 20101027
  Serious: Yes (Hospitalization)
  Sender: FDA-Public Use
  Company Number: DE-AMGEN-QUU413469

PATIENT
  Sex: Male
  Weight: 68 kg

DRUGS (3)
  1. ENBREL [Suspect]
     Indication: ANKYLOSING SPONDYLITIS
     Route: 058
     Dates: start: 20090430
  2. PROXEN [Concomitant]
     Route: 048
     Dates: start: 20080101
  3. PREDNISOLONE [Concomitant]
     Route: 048
     Dates: start: 20080101

REACTIONS (3)
  - CHOLECYSTITIS ACUTE [None]
  - CHOLELITHIASIS [None]
  - PANCREATITIS ACUTE [None]
